FAERS Safety Report 20664252 (Version 2)
Quarter: 2022Q2

REPORT INFORMATION
  Report Type: Report from Study
  Country: FR (occurrence: FR)
  Receive Date: 20220401
  Receipt Date: 20220411
  Transmission Date: 20220721
  Serious: Yes (Other)
  Sender: FDA-Public Use
  Company Number: FR-GILEAD-2021-0559108

PATIENT
  Age: 35 Year
  Sex: Male

DRUGS (16)
  1. PREZISTA [Suspect]
     Active Substance: DARUNAVIR ETHANOLATE
     Indication: HIV infection
     Dosage: UNK
     Route: 065
  2. BICTEGRAVIR SODIUM\EMTRICITABINE\TENOFOVIR ALAFENAMIDE FUMARATE [Suspect]
     Active Substance: BICTEGRAVIR SODIUM\EMTRICITABINE\TENOFOVIR ALAFENAMIDE FUMARATE
     Indication: HIV-2 infection
     Dosage: UNK
     Route: 048
     Dates: start: 20190305, end: 20210113
  3. BICTEGRAVIR SODIUM\EMTRICITABINE\TENOFOVIR ALAFENAMIDE FUMARATE [Suspect]
     Active Substance: BICTEGRAVIR SODIUM\EMTRICITABINE\TENOFOVIR ALAFENAMIDE FUMARATE
     Dosage: UNK
     Route: 048
     Dates: start: 20210126
  4. LENACAPAVIR [Suspect]
     Active Substance: LENACAPAVIR
     Indication: HIV-2 infection
     Dosage: 300 MG
     Route: 065
  5. LENACAPAVIR [Suspect]
     Active Substance: LENACAPAVIR
     Dosage: 600 MG
     Route: 065
     Dates: start: 20211216, end: 20211217
  6. LENACAPAVIR [Suspect]
     Active Substance: LENACAPAVIR
     Dosage: 300 MG, DAY 8 AND 14JAN2022
     Route: 065
     Dates: start: 20211223, end: 20220114
  7. DOLUTEGRAVIR [Suspect]
     Active Substance: DOLUTEGRAVIR
     Indication: HIV infection
     Dosage: 50 MG, QD
     Route: 065
  8. RITONAVIR [Suspect]
     Active Substance: RITONAVIR
     Indication: HIV infection
     Dosage: 1 DOSAGE FORM, QD
     Route: 065
  9. FOSCAVIR [Suspect]
     Active Substance: FOSCARNET SODIUM
     Indication: HIV infection
     Dosage: UNK
     Route: 065
     Dates: start: 20211110, end: 20211124
  10. IBALIZUMAB [Suspect]
     Active Substance: IBALIZUMAB
     Indication: HIV infection
     Dosage: 2000 MG, LOADING DOSE
     Route: 065
     Dates: start: 20211110
  11. IBALIZUMAB [Suspect]
     Active Substance: IBALIZUMAB
     Dosage: 800 MG, MAINTENANCE DOSE
     Route: 065
     Dates: start: 20211124, end: 20220104
  12. CHOLECALCIFEROL [Concomitant]
     Active Substance: CHOLECALCIFEROL
  13. PENTAMIDINE [Concomitant]
     Active Substance: PENTAMIDINE
  14. LEUCOVORIN CALCIUM [Concomitant]
     Active Substance: LEUCOVORIN CALCIUM
     Dosage: 25 MG, Q1WK
  15. HARUNGANA MADAGASCARIENSIS [Concomitant]
  16. LEUCOVORIN CALCIUM [Concomitant]
     Active Substance: LEUCOVORIN CALCIUM
     Dosage: 25 MG, Q1WK

REACTIONS (4)
  - Blood HIV RNA [Recovered/Resolved]
  - Virologic failure [Recovering/Resolving]
  - Genotype drug resistance test positive [Unknown]
  - Off label use [Unknown]

NARRATIVE: CASE EVENT DATE: 20211105
